FAERS Safety Report 6398690-X (Version None)
Quarter: 2009Q4

REPORT INFORMATION
  Report Type: 
  Country: None (occurrence: None)
  Receive Date: 20091002
  Receipt Date: 20090923
  Transmission Date: 20100525
  Serious: Yes (Death)
  Sender: FDA-Public Use
  Company Number: THYM-1001218

PATIENT
  Age: 2 Year
  Sex: Male

DRUGS (5)
  1. THYMOGLOBULIN [Suspect]
     Indication: STEM CELL TRANSPLANT
     Dosage: INTRAVENOUS
     Route: 042
  2. FLUDARABINE PHOSPHATE [Concomitant]
  3. BUSULFAN (BUSULFAN) [Concomitant]
  4. CYCLOPHOSPHAMIDE [Concomitant]
  5. ALDURAZYME [Concomitant]

REACTIONS (2)
  - CAPILLARY LEAK SYNDROME [None]
  - MULTI-ORGAN FAILURE [None]
